FAERS Safety Report 19755066 (Version 1)
Quarter: 2021Q3

REPORT INFORMATION
  Report Type: Spontaneous
  Country: SE (occurrence: SE)
  Receive Date: 20210827
  Receipt Date: 20210827
  Transmission Date: 20211014
  Serious: Yes (Hospitalization)
  Sender: FDA-Public Use
  Company Number: SE-TEVA-2021-SE-1945313

PATIENT
  Age: 31 Year
  Sex: Female

DRUGS (3)
  1. BUPROPION. [Suspect]
     Active Substance: BUPROPION
     Dates: start: 2021
  2. ANKSILON [Suspect]
     Active Substance: BUSPIRONE HYDROCHLORIDE
     Dates: start: 2021
  3. FLUOXETINE [Suspect]
     Active Substance: FLUOXETINE HYDROCHLORIDE
     Dates: start: 2021

REACTIONS (3)
  - Toxicity to various agents [Recovering/Resolving]
  - Intentional self-injury [Unknown]
  - Serotonin syndrome [Recovering/Resolving]

NARRATIVE: CASE EVENT DATE: 20210802
